FAERS Safety Report 7071787-7 (Version None)
Quarter: 2010Q4

REPORT INFORMATION
  Report Type: 
  Country: None (occurrence: None)
  Receive Date: 20101029
  Receipt Date: 20091021
  Transmission Date: 20110411
  Serious: No
  Sender: FDA-Public Use
  Company Number: A0812796A

PATIENT
  Age: 63 Year
  Sex: Female

DRUGS (4)
  1. ADVAIR DISKUS 100/50 [Suspect]
     Indication: ASTHMA
     Dosage: 1PUFF TWICE PER DAY
     Route: 055
     Dates: start: 20060101
  2. SYNTHROID [Concomitant]
  3. CITALOPRAM HYDROBROMIDE [Concomitant]
     Dates: end: 20091018
  4. PRISTIQ [Concomitant]
     Dates: end: 20091001

REACTIONS (4)
  - PAIN IN EXTREMITY [None]
  - PARAESTHESIA [None]
  - PRURITUS [None]
  - RESTLESS LEGS SYNDROME [None]
